FAERS Safety Report 15117983 (Version 2)
Quarter: 2018Q3

REPORT INFORMATION
  Report Type: Not Available
  Country: US (occurrence: US)
  Receive Date: 20180706
  Receipt Date: 20180713
  Transmission Date: 20181010
  Serious: No
  Sender: FDA-Public Use
  Company Number: US-NEUROCRINE BIOSCIENCES INC.-2018NBI02001

PATIENT
  Sex: Male

DRUGS (1)
  1. INGREZZA [Suspect]
     Active Substance: VALBENAZINE
     Indication: TARDIVE DYSKINESIA
     Route: 048
     Dates: start: 20180531, end: 20180702

REACTIONS (6)
  - Restless legs syndrome [Unknown]
  - Bruxism [Unknown]
  - Dysuria [Unknown]
  - Tremor [Unknown]
  - Dyspepsia [Unknown]
  - Lethargy [Unknown]

NARRATIVE: CASE EVENT DATE: 2018
